FAERS Safety Report 8237069-2 (Version None)
Quarter: 2012Q1

REPORT INFORMATION
  Report Type: 
  Country: None (occurrence: None)
  Receive Date: 20120327
  Receipt Date: 20120321
  Transmission Date: 20120608
  Serious: Yes (Other)
  Sender: FDA-Public Use
  Company Number: FR-PFIZER INC-2012073079

PATIENT
  Age: 55 Year
  Sex: Male

DRUGS (3)
  1. ALDACTONE [Suspect]
     Dosage: 50MG, UNK
     Route: 048
     Dates: start: 20120127, end: 20120207
  2. LASIX [Suspect]
     Dosage: 40 MG
     Route: 048
     Dates: start: 20120131, end: 20120207
  3. ALDACTONE [Suspect]
     Dosage: 50 MG, UNK
     Dates: start: 20120210

REACTIONS (3)
  - RASH MORBILLIFORM [None]
  - PRURITUS [None]
  - EOSINOPHILIA [None]
